FAERS Safety Report 15803483 (Version 1)
Quarter: 2019Q1

REPORT INFORMATION
  Report Type: Spontaneous
  Country: KR (occurrence: KR)
  Receive Date: 20190109
  Receipt Date: 20190109
  Transmission Date: 20190417
  Serious: Yes (Other)
  Sender: FDA-Public Use
  Company Number: KR-MYLANLABS-2019M1001276

PATIENT
  Age: 50 Year
  Sex: Male

DRUGS (1)
  1. VANCOMYCIN [Suspect]
     Active Substance: VANCOMYCIN
     Indication: ENDOPHTHALMITIS
     Dosage: INTRACAMERAL VANCOMYCIN
     Route: 031

REACTIONS (3)
  - Retinal vasculitis [Recovering/Resolving]
  - Retinal vascular occlusion [Recovering/Resolving]
  - Retinal haemorrhage [Recovering/Resolving]
